FAERS Safety Report 9237559 (Version 1)
Quarter: 2013Q2

REPORT INFORMATION
  Report Type: Spontaneous
  Country: CA (occurrence: CA)
  Receive Date: 20130418
  Receipt Date: 20130418
  Transmission Date: 20140414
  Serious: Yes (Death)
  Sender: FDA-Public Use
  Company Number: CA-AMGEN-CANSP2013026288

PATIENT
  Age: 91 Year
  Sex: Female

DRUGS (7)
  1. PROLIA [Suspect]
     Indication: OSTEOPOROSIS POSTMENOPAUSAL
     Dosage: UNK
     Dates: start: 20130410
  2. LACTULOSE [Concomitant]
  3. PREDNISONE [Concomitant]
  4. FUROSEMIDE [Concomitant]
  5. ARACENAC [Concomitant]
  6. ATENOLOL [Concomitant]
  7. NORVASC [Concomitant]

REACTIONS (2)
  - Death [Fatal]
  - Respiratory tract infection [Unknown]
